FAERS Safety Report 17630514 (Version 1)
Quarter: 2020Q2

REPORT INFORMATION
  Report Type: Spontaneous
  Country: US (occurrence: US)
  Receive Date: 20200405
  Receipt Date: 20200405
  Transmission Date: 20200713
  Serious: Yes (Life-Threatening, Hospitalization, Other)
  Sender: FDA-Public Use
  Company Number: None

PATIENT
  Age: 30 Month
  Sex: Male
  Weight: 13.95 kg

DRUGS (1)
  1. SOLU-MEDROL [Suspect]
     Active Substance: METHYLPREDNISOLONE SODIUM SUCCINATE
     Indication: ANAPHYLACTIC REACTION
     Dosage: ?          OTHER FREQUENCY:ONCE - IN ER;?
     Route: 042
     Dates: start: 20200216

REACTIONS (6)
  - Product prescribing error [None]
  - Product use issue [None]
  - Condition aggravated [None]
  - Product complaint [None]
  - Product formulation issue [None]
  - Anaphylactic reaction [None]

NARRATIVE: CASE EVENT DATE: 20200216
